FAERS Safety Report 5442655-9 (Version None)
Quarter: 2007Q3

REPORT INFORMATION
  Report Type: 
  Country: None (occurrence: None)
  Receive Date: 20070904
  Receipt Date: 20070822
  Transmission Date: 20080115
  Serious: Yes (Hospitalization)
  Sender: FDA-Public Use
  Company Number: US-SHR-US-2007-021084

PATIENT
  Age: 34 Year
  Sex: Male
  Weight: 65.76 kg

DRUGS (7)
  1. BETASERON [Suspect]
     Indication: SECONDARY PROGRESSIVE MULTIPLE SCLEROSIS
     Dosage: 8 MIU, EVERY 2D
     Route: 058
     Dates: start: 20060201
  2. CLONAZEPAM [Concomitant]
     Dosage: 500 UNK, 3X/DAY
  3. CEFDINIR [Concomitant]
     Dosage: 300 MG, 2X/DAY
  4. TRILEPTAL [Concomitant]
     Dosage: 300 UNK, 3X/DAY
  5. OXYBUTON [Concomitant]
     Dosage: UNK, 2X/DAY
  6. BACLOFEN [Concomitant]
     Dosage: 10 MG, 3X/DAY
  7. TYLENOL (CAPLET) [Concomitant]

REACTIONS (8)
  - BRONCHITIS [None]
  - CARDIAC DISORDER [None]
  - CYST [None]
  - DECUBITUS ULCER [None]
  - PNEUMONIA ASPIRATION [None]
  - POST PROCEDURAL COMPLICATION [None]
  - PYREXIA [None]
  - TACHYCARDIA [None]
